FAERS Safety Report 7040537-2 (Version None)
Quarter: 2010Q4

REPORT INFORMATION
  Report Type: 
  Country: None (occurrence: None)
  Receive Date: 20101008
  Receipt Date: 20101008
  Transmission Date: 20110411
  Serious: Yes (Hospitalization)
  Sender: FDA-Public Use
  Company Number: None

PATIENT
  Sex: Female
  Weight: 54.4316 kg

DRUGS (2)
  1. REGLAN [Suspect]
     Indication: NAUSEA
     Dosage: 10 MG = 2ML QID IV PUSH 040
     Route: 042
     Dates: start: 20100713, end: 20100718
  2. COMPAZINE [Suspect]
     Indication: NAUSEA
     Dosage: 10 MG = 2ML Q 6 HRS PRN IV PUSH 040
     Route: 042
     Dates: start: 20100713, end: 20100718

REACTIONS (13)
  - AGGRESSION [None]
  - CANDIDIASIS [None]
  - DYSKINESIA [None]
  - DYSTONIA [None]
  - GAZE PALSY [None]
  - GRAND MAL CONVULSION [None]
  - HYPERTENSION [None]
  - MYDRIASIS [None]
  - NAUSEA [None]
  - SPEECH DISORDER [None]
  - STARING [None]
  - TRISMUS [None]
  - VOMITING [None]
